FAERS Safety Report 9420795 (Version 1)
Quarter: 2013Q3

REPORT INFORMATION
  Report Type: Spontaneous
  Country: US (occurrence: US)
  Receive Date: 20130725
  Receipt Date: 20130725
  Transmission Date: 20140515
  Serious: No
  Sender: FDA-Public Use
  Company Number: US-ABBOTT-13P-163-1075703-00

PATIENT
  Sex: Female

DRUGS (5)
  1. SYNTHROID [Suspect]
     Indication: HYPOTHYROIDISM
     Route: 048
     Dates: start: 201302
  2. SYNTHROID [Suspect]
     Dates: start: 201302
  3. VASOTEC [Concomitant]
     Indication: PROPHYLAXIS
  4. HYDROCHLOROTHIAZIDE [Concomitant]
     Indication: SWELLING
  5. INSULIN [Concomitant]
     Indication: DIABETES MELLITUS

REACTIONS (1)
  - Blood glucose increased [Not Recovered/Not Resolved]
